FAERS Safety Report 17998048 (Version 1)
Quarter: 2020Q3

REPORT INFORMATION
  Report Type: Other
  Country: CA (occurrence: CA)
  Receive Date: 20200709
  Receipt Date: 20200709
  Transmission Date: 20201103
  Serious: Yes (Other)
  Sender: FDA-Public Use
  Company Number: CA-INTERCEPT-PM2020001398

PATIENT
  Age: 54 Year
  Sex: Female

DRUGS (3)
  1. OCALIVA [Suspect]
     Active Substance: OBETICHOLIC ACID
     Dosage: 5 MG, 4 DAYS A WEEK
     Route: 048
     Dates: start: 2020
  2. OCALIVA [Suspect]
     Active Substance: OBETICHOLIC ACID
     Indication: PRIMARY BILIARY CHOLANGITIS
     Dosage: 5 MG, 3X/WK
     Route: 048
     Dates: start: 20200508, end: 2020
  3. URSODIOL. [Concomitant]
     Active Substance: URSODIOL
     Dosage: 750 MG, QD

REACTIONS (4)
  - Oesophageal variceal ligation [Unknown]
  - Increased liver stiffness [Unknown]
  - Off label use [Not Recovered/Not Resolved]
  - Varices oesophageal [Unknown]

NARRATIVE: CASE EVENT DATE: 2020
